FAERS Safety Report 18972871 (Version 1)
Quarter: 2021Q1

REPORT INFORMATION
  Report Type: Spontaneous
  Country: US (occurrence: US)
  Receive Date: 20210304
  Receipt Date: 20210304
  Transmission Date: 20210420
  Serious: Yes (Hospitalization)
  Sender: FDA-Public Use
  Company Number: None

PATIENT
  Age: 60 Year
  Sex: Male

DRUGS (1)
  1. LEVOFLOXACIN (LEVOFLOXACIN 5MG/ML/DEXTROSE INJ,BAG150ML) [Suspect]
     Active Substance: LEVOFLOXACIN ANHYDROUS
     Indication: CYSTITIS
     Route: 042
     Dates: start: 20201224, end: 20201224

REACTIONS (7)
  - Chills [None]
  - Myalgia [None]
  - Pain [None]
  - Vomiting [None]
  - Nausea [None]
  - Angina pectoris [None]
  - Hypoaesthesia [None]

NARRATIVE: CASE EVENT DATE: 20201225
